FAERS Safety Report 17921940 (Version 1)
Quarter: 2020Q2

REPORT INFORMATION
  Report Type: Spontaneous
  Country: US (occurrence: US)
  Receive Date: 20200619
  Receipt Date: 20200619
  Transmission Date: 20200714
  Serious: Yes (Death)
  Sender: FDA-Public Use
  Company Number: None

PATIENT
  Age: 65 Year
  Sex: Male

DRUGS (4)
  1. INTELENCE [Concomitant]
     Active Substance: ETRAVIRINE
  2. ASPIRIN. [Concomitant]
     Active Substance: ASPIRIN
  3. PRAVASTATIN. [Concomitant]
     Active Substance: PRAVASTATIN
  4. CAPECITABINE. [Suspect]
     Active Substance: CAPECITABINE
     Indication: PANCREATIC CARCINOMA
     Route: 048
     Dates: start: 20200214, end: 20200606

REACTIONS (1)
  - Death [None]

NARRATIVE: CASE EVENT DATE: 20200606
